FAERS Safety Report 19458233 (Version 10)
Quarter: 2023Q2

REPORT INFORMATION
  Report Type: Report from Study
  Country: CA (occurrence: CA)
  Receive Date: 20210624
  Receipt Date: 20230517
  Transmission Date: 20230722
  Serious: Yes (Hospitalization, Other)
  Sender: FDA-Public Use
  Company Number: NVSC2020CA240907

PATIENT
  Age: 86 Year
  Sex: Female

DRUGS (3)
  1. SANDOSTATIN LAR DEPOT [Suspect]
     Active Substance: OCTREOTIDE ACETATE
     Indication: Carcinoid tumour
     Dosage: 30 MG, Q2W
     Route: 030
     Dates: start: 20200805
  2. SANDOSTATIN LAR DEPOT [Suspect]
     Active Substance: OCTREOTIDE ACETATE
  3. SANDOSTATIN LAR DEPOT [Suspect]
     Active Substance: OCTREOTIDE ACETATE

REACTIONS (17)
  - Pneumonia [Recovered/Resolved]
  - Arthritis [Unknown]
  - Neck pain [Unknown]
  - Back pain [Unknown]
  - Hip fracture [Unknown]
  - Infection [Unknown]
  - Dyspnoea [Unknown]
  - Blood pressure increased [Unknown]
  - Postoperative wound infection [Unknown]
  - Blood pressure decreased [Unknown]
  - Hypoacusis [Unknown]
  - Fall [Unknown]
  - Haemoglobin abnormal [Unknown]
  - Malaise [Recovered/Resolved]
  - Headache [Unknown]
  - Product dose omission issue [Unknown]
  - Inappropriate schedule of product administration [Unknown]

NARRATIVE: CASE EVENT DATE: 20200826
